FAERS Safety Report 4923172-9 (Version None)
Quarter: 2006Q1

REPORT INFORMATION
  Report Type: 
  Country: None (occurrence: None)
  Receive Date: 20060113
  Receipt Date: 20050104
  Transmission Date: 20060701
  Serious: Yes (Other)
  Sender: FDA-Public Use
  Company Number: HQWYE194216JUL04

PATIENT
  Age: 54 Year
  Sex: Female
  Weight: 74.46 kg

DRUGS (4)
  1. PREMPRO [Suspect]
     Indication: MENSTRUATION IRREGULAR
     Dosage: ORAL
     Route: 048
  2. PREMPRO [Suspect]
     Indication: MOOD ALTERED
     Dosage: ORAL
     Route: 048
  3. PREMARIN [Suspect]
     Indication: MENSTRUATION IRREGULAR
     Dates: start: 19911201
  4. PREMARIN [Suspect]
     Indication: MOOD ALTERED
     Dates: start: 19911201

REACTIONS (1)
  - BREAST CANCER [None]
